FAERS Safety Report 9027269 (Version 2)
Quarter: 2013Q1

REPORT INFORMATION
  Report Type: Spontaneous
  Country: US (occurrence: US)
  Receive Date: 20130123
  Receipt Date: 20130211
  Transmission Date: 20140127
  Serious: Yes (Other)
  Sender: FDA-Public Use
  Company Number: CHPA2013US001181

PATIENT
  Sex: Female

DRUGS (12)
  1. LAMISIL [Suspect]
     Indication: FUNGAL INFECTION
     Dosage: UNK, TWICE DAILY
     Route: 061
     Dates: start: 2008
  2. IRON [Concomitant]
  3. CALCIUM [Concomitant]
  4. VITAMIN D [Concomitant]
  5. PLAVIX [Concomitant]
  6. SIMVASTATIN [Concomitant]
  7. RANITIDINE [Concomitant]
  8. METOPROLOL [Concomitant]
  9. RAMIPRIL [Concomitant]
  10. IMODIUM [Concomitant]
  11. IPRATROPIUM BROMIDE [Concomitant]
  12. MULTAQ [Concomitant]

REACTIONS (8)
  - Gout [Unknown]
  - Fungal infection [Not Recovered/Not Resolved]
  - Condition aggravated [Not Recovered/Not Resolved]
  - Off label use [Unknown]
  - Therapeutic response decreased [Unknown]
  - Incorrect drug administration duration [Unknown]
  - Wrong technique in drug usage process [Unknown]
  - Drug administered at inappropriate site [Unknown]
